FAERS Safety Report 9066855 (Version 1)
Quarter: 2013Q1

REPORT INFORMATION
  Report Type: Spontaneous
  Country: US (occurrence: US)
  Receive Date: 20130214
  Receipt Date: 20130214
  Transmission Date: 20140127
  Serious: Yes (Hospitalization)
  Sender: FDA-Public Use
  Company Number: US-PFIZER INC-2013057468

PATIENT
  Age: 57 Year
  Sex: Female
  Weight: 104.31 kg

DRUGS (8)
  1. NEURONTIN [Suspect]
     Indication: NEUROPATHY PERIPHERAL
     Dosage: 300 MG, 2X/DAY
     Route: 048
  2. VISTARIL [Suspect]
     Dosage: 25 MG, 1X/DAY
     Route: 048
  3. TRAMADOL [Concomitant]
     Dosage: 100 MG(TWO 50MG TABLETS), 3X/DAY
  4. METFORMIN [Concomitant]
     Dosage: 1000 MG, 2X/DAY
  5. DICLOFENAC [Concomitant]
     Dosage: 75 MG, 2X/DAY
  6. ACETAMINOPHEN [Concomitant]
     Dosage: 500 MG, UNK
  7. LISINOPRIL [Concomitant]
     Dosage: UNK, 1X/DAY
  8. PRAVASTATIN [Concomitant]
     Dosage: UNK, 1X/DAY

REACTIONS (2)
  - Diabetes mellitus [Unknown]
  - Renal disorder [Unknown]
